FAERS Safety Report 4612115-3 (Version None)
Quarter: 2005Q2

REPORT INFORMATION
  Report Type: 
  Country: None (occurrence: None)
  Receive Date: 20050308
  Receipt Date: 20050103
  Transmission Date: 20051028
  Serious: Yes (Other)
  Sender: FDA-Public Use
  Company Number: 2004UW24373

PATIENT
  Age: 71 Year
  Sex: Male
  Weight: 98.429 kg

DRUGS (8)
  1. CRESTOR [Suspect]
     Indication: BLOOD CHOLESTEROL INCREASED
     Dosage: 5 MG QD PO
     Route: 048
     Dates: start: 20040623
  2. CRESTOR [Suspect]
     Indication: BLOOD CHOLESTEROL INCREASED
     Dosage: 10 MG QD PO
     Route: 048
  3. NAPROSYN [Concomitant]
  4. GLUCOSAMINE/CHONDROITIN [Concomitant]
  5. APAP TAB [Concomitant]
  6. DIOVAN HCT [Concomitant]
  7. LASIX [Concomitant]
  8. MULTI-VITAMINS [Concomitant]

REACTIONS (3)
  - BLOOD UREA INCREASED [None]
  - DIFFICULTY IN WALKING [None]
  - MYALGIA [None]
